FAERS Safety Report 12672743 (Version 1)
Quarter: 2016Q3

REPORT INFORMATION
  Report Type: Spontaneous
  Country: US (occurrence: US)
  Receive Date: 20160822
  Receipt Date: 20160822
  Transmission Date: 20161109
  Serious: No
  Sender: FDA-Public Use
  Company Number: US-JNJFOC-20160801113

PATIENT
  Sex: Female
  Weight: 52.16 kg

DRUGS (4)
  1. MUTLI-VITAMIN [Concomitant]
     Indication: PRODUCT USED FOR UNKNOWN INDICATION
     Route: 065
  2. BIOTIN [Concomitant]
     Active Substance: BIOTIN
     Indication: PRODUCT USED FOR UNKNOWN INDICATION
     Route: 065
  3. MENS ROGAINE EXTRA STRENGTH [Suspect]
     Active Substance: MINOXIDIL
     Route: 061
  4. MENS ROGAINE EXTRA STRENGTH [Suspect]
     Active Substance: MINOXIDIL
     Indication: DIFFUSE ALOPECIA
     Dosage: A LITTLE MORE THAN ONE ML; USING IT ALL OVER
     Route: 061
     Dates: end: 20160801

REACTIONS (4)
  - Product use issue [Not Recovered/Not Resolved]
  - Drug administered at inappropriate site [Not Recovered/Not Resolved]
  - Alopecia [Not Recovered/Not Resolved]
  - Off label use [Not Recovered/Not Resolved]
